FAERS Safety Report 6681627-3 (Version None)
Quarter: 2010Q2

REPORT INFORMATION
  Report Type: 
  Country: None (occurrence: None)
  Receive Date: 20100414
  Receipt Date: 20100331
  Transmission Date: 20101027
  Serious: Yes (Hospitalization)
  Sender: FDA-Public Use
  Company Number: DE-ELI_LILLY_AND_COMPANY-DE201004000056

PATIENT
  Age: 66 Year
  Sex: Female

DRUGS (11)
  1. CYMBALTA [Suspect]
     Indication: DEPRESSION
     Dosage: 60 MG, 2/D
     Route: 065
     Dates: start: 20090101, end: 20100301
  2. ATACAND HCT [Concomitant]
     Dosage: 16 D/F, UNKNOWN
     Route: 065
  3. METOHEXAL [Concomitant]
     Dosage: 100 D/F, UNKNOWN
     Route: 065
  4. TORSEMIDE [Concomitant]
     Dosage: 10 MG, UNKNOWN
     Route: 065
  5. CORVATON [Concomitant]
     Dosage: 4 MG, UNKNOWN
     Route: 065
  6. ISOSORBIDE DINITRATE [Concomitant]
     Dosage: 40 D/F, UNKNOWN
     Route: 065
  7. AMLODIPINE [Concomitant]
     Dosage: 10 D/F, UNKNOWN
     Route: 065
  8. PROPAFENONE HCL [Concomitant]
     Dosage: 300 D/F, UNKNOWN
     Route: 065
  9. TAVOR [Concomitant]
     Dosage: 3 MG, UNKNOWN
     Route: 065
  10. LACTULOSE [Concomitant]
     Dosage: 30 ML, UNKNOWN
     Route: 065
  11. STANGYL [Concomitant]
     Dosage: 50 MG, UNKNOWN
     Route: 065

REACTIONS (7)
  - AGITATION [None]
  - ANGINA PECTORIS [None]
  - CENTRAL NERVOUS SYSTEM STIMULATION [None]
  - DRUG WITHDRAWAL SYNDROME [None]
  - HYPERTENSION [None]
  - HYPOMANIA [None]
  - RESTLESSNESS [None]
